FAERS Safety Report 7256511 (Version 3)
Quarter: 2014Q3

REPORT INFORMATION
  Report Type: Spontaneous
  Country: US (occurrence: None)
  Receive Date: 20100113
  Receipt Date: 20140904
  Transmission Date: 20150326
  Serious: Yes (Hospitalization, Other)
  Sender: FDA-Public Use
  Company Number: 2010S1000004

PATIENT
  Age: 55 Year
  Sex: Female
  Weight: 56 kg

DRUGS (4)
  1. PHOSPHO-SODA [Suspect]
     Active Substance: SODIUM PHOSPHATE, DIBASIC\SODIUM PHOSPHATE, MONOBASIC
     Indication: COLONOSCOPY
     Dosage: PO
     Route: 048
     Dates: start: 20041013, end: 20041014
  2. CRESTOR [Concomitant]
     Active Substance: ROSUVASTATIN CALCIUM
  3. PREMPRO (MEDROXYPROGESTERONE ACETATE, ESTROGENS CONJUGATED) [Concomitant]
  4. ZYRTEC [Concomitant]
     Active Substance: CETIRIZINE HYDROCHLORIDE

REACTIONS (17)
  - Haemodialysis [None]
  - Renal failure chronic [None]
  - Nephrogenic anaemia [None]
  - Chronic gastritis [None]
  - Cholecystitis [None]
  - Vascular pseudoaneurysm [None]
  - Haematuria [None]
  - Adenoma benign [None]
  - Glomerulonephritis [None]
  - Hyperphosphataemia [None]
  - Proteinuria [None]
  - Hyperparathyroidism [None]
  - Haemorrhoids [None]
  - Acidosis [None]
  - Renal failure [None]
  - Haemoglobin increased [None]
  - Polyp [None]

NARRATIVE: CASE EVENT DATE: 20040417
